FAERS Safety Report 8591756-5 (Version None)
Quarter: 2012Q3

REPORT INFORMATION
  Report Type: 
  Country: None (occurrence: None)
  Receive Date: 20120814
  Receipt Date: 20120809
  Transmission Date: 20120928
  Serious: Yes (Other)
  Sender: FDA-Public Use
  Company Number: PHHY2012BR060556

PATIENT
  Sex: Male

DRUGS (2)
  1. METFORMIN HYDROCHLORIDE [Concomitant]
     Dosage: UNK UKN, UNK
  2. AMLODOPINE BESYLATE AND VALSARTAN [Suspect]
     Dosage: 320/5MG, UNK

REACTIONS (5)
  - MEMORY IMPAIRMENT [None]
  - BLOOD GLUCOSE ABNORMAL [None]
  - WHEEZING [None]
  - ASTHMA [None]
  - BRONCHITIS [None]
